FAERS Safety Report 4953853-2 (Version None)
Quarter: 2006Q1

REPORT INFORMATION
  Report Type: 
  Country: None (occurrence: None)
  Receive Date: 20060321
  Receipt Date: 20060306
  Transmission Date: 20060701
  Serious: Yes (Death, Hospitalization)
  Sender: FDA-Public Use
  Company Number: 2006-BP-02568RO

PATIENT
  Sex: Female

DRUGS (1)
  1. METHOTREXATE [Suspect]
     Indication: ECTOPIC PREGNANCY
     Dosage: 50 MG/M2 (SEE TEXT), IV
     Route: 042

REACTIONS (18)
  - ACUTE RESPIRATORY DISTRESS SYNDROME [None]
  - ANAEMIA [None]
  - CARDIOPULMONARY FAILURE [None]
  - CHEMOTHERAPEUTIC DRUG LEVEL INCREASED [None]
  - CONFUSIONAL STATE [None]
  - DELIRIUM [None]
  - DIARRHOEA [None]
  - DRUG DOSE OMISSION [None]
  - DRUG TOXICITY [None]
  - ELECTROLYTE IMBALANCE [None]
  - INTESTINAL ISCHAEMIA [None]
  - LACTIC ACIDOSIS [None]
  - NEUTROPENIA [None]
  - ORAL CANDIDIASIS [None]
  - PANCYTOPENIA [None]
  - PROCEDURAL COMPLICATION [None]
  - SYSTEMIC INFLAMMATORY RESPONSE SYNDROME [None]
  - TOXIC EPIDERMAL NECROLYSIS [None]
